FAERS Safety Report 24399397 (Version 2)
Quarter: 2024Q4

REPORT INFORMATION
  Report Type: Report from Study
  Country: US (occurrence: US)
  Receive Date: 20241004
  Receipt Date: 20241208
  Transmission Date: 20250114
  Serious: Yes (Other)
  Sender: ABBVIE
  Company Number: US-ABBVIE-5947515

PATIENT
  Age: 61 Year
  Sex: Male

DRUGS (1)
  1. SKYRIZI [Suspect]
     Active Substance: RISANKIZUMAB-RZAA
     Indication: Psoriasis
     Route: 058
     Dates: start: 202306

REACTIONS (2)
  - Diabetic foot [Recovering/Resolving]
  - Infected skin ulcer [Recovering/Resolving]

NARRATIVE: CASE EVENT DATE: 20240522
